FAERS Safety Report 6524104-2 (Version None)
Quarter: 2009Q4

REPORT INFORMATION
  Report Type: 
  Country: None (occurrence: None)
  Receive Date: 20091231
  Receipt Date: 20060606
  Transmission Date: 20100525
  Serious: Yes (Other)
  Sender: FDA-Public Use
  Company Number: US-BAXTER-501598

PATIENT
  Age: 18 Year
  Sex: Male
  Weight: 53 kg

DRUGS (3)
  1. GAMMAGARD S/D [Suspect]
     Indication: HYPOGAMMAGLOBULINAEMIA
     Route: 042
     Dates: start: 19991222, end: 19991222
  2. GAMMAGARD S/D [Suspect]
     Indication: GRANULOMA
     Route: 042
     Dates: start: 19991222, end: 19991222
  3. POLYHISTINE [Concomitant]
     Indication: DRUG USE FOR UNKNOWN INDICATION
     Route: 065

REACTIONS (5)
  - ANAPHYLACTIC REACTION [None]
  - ANXIETY [None]
  - CHEST PAIN [None]
  - DYSPNOEA [None]
  - HYPOTENSION [None]
